FAERS Safety Report 10161175 (Version 1)
Quarter: 2014Q2

REPORT INFORMATION
  Report Type: Report from Study
  Country: GB (occurrence: GB)
  Receive Date: 20140508
  Receipt Date: 20140508
  Transmission Date: 20141212
  Serious: Yes (Hospitalization)
  Sender: FDA-Public Use
  Company Number: GB-ABBVIE-14P-167-1231006-00

PATIENT
  Age: 57 Year
  Sex: Male
  Weight: 84.6 kg

DRUGS (3)
  1. HUMIRA [Suspect]
     Indication: PSORIASIS
     Route: 058
     Dates: start: 20120612
  2. CITALOPRAM [Concomitant]
     Indication: PRODUCT USED FOR UNKNOWN INDICATION
     Route: 065
     Dates: start: 19970701
  3. TELMISARTAN [Concomitant]
     Indication: PRODUCT USED FOR UNKNOWN INDICATION
     Route: 065
     Dates: start: 20060701

REACTIONS (12)
  - Dysuria [Recovered/Resolved]
  - Calculus ureteric [Recovered/Resolved]
  - Abdominal pain [Recovered/Resolved]
  - Flank pain [Recovered/Resolved]
  - Groin pain [Recovered/Resolved]
  - Nephrolithiasis [Recovered/Resolved]
  - Abdominal pain [Recovered/Resolved]
  - Ureteric dilatation [Recovered/Resolved]
  - Bladder dilatation [Recovered/Resolved]
  - Computerised tomogram kidney abnormal [Recovered/Resolved]
  - Unevaluable event [Recovered/Resolved]
  - Ureteric obstruction [Recovered/Resolved]
